FAERS Safety Report 17863036 (Version 4)
Quarter: 2021Q2

REPORT INFORMATION
  Report Type: Report from Study
  Country: US (occurrence: US)
  Receive Date: 20200605
  Receipt Date: 20210514
  Transmission Date: 20210717
  Serious: Yes (Hospitalization)
  Sender: FDA-Public Use
  Company Number: US-BIOGEN-2020BI00881892

PATIENT
  Sex: Female

DRUGS (2)
  1. TECFIDERA [Suspect]
     Active Substance: DIMETHYL FUMARATE
     Route: 048
     Dates: start: 2014
  2. TECFIDERA [Suspect]
     Active Substance: DIMETHYL FUMARATE
     Indication: MULTIPLE SCLEROSIS
     Dosage: MAINTENANCE DOSE
     Route: 048
     Dates: start: 20140528

REACTIONS (9)
  - Multiple sclerosis [Recovered/Resolved]
  - Wheezing [Recovered/Resolved]
  - Balance disorder [Not Recovered/Not Resolved]
  - Influenza [Recovered/Resolved]
  - Brain oedema [Unknown]
  - Band sensation [Recovered/Resolved]
  - Dyspnoea [Recovered/Resolved]
  - Encephalitis viral [Recovered/Resolved]
  - Fall [Recovered/Resolved]

NARRATIVE: CASE EVENT DATE: 2019
